FAERS Safety Report 6182138-4 (Version None)
Quarter: 2009Q2

REPORT INFORMATION
  Report Type: 
  Country: None (occurrence: None)
  Receive Date: 20090505
  Receipt Date: 20090423
  Transmission Date: 20091009
  Serious: Yes (Death, Life-Threatening, Hospitalization, Other)
  Sender: FDA-Public Use
  Company Number: 59522

PATIENT
  Age: 48 Year
  Sex: Male
  Weight: 64 kg

DRUGS (1)
  1. ETOPOSIDE [Suspect]
     Indication: NON-SMALL CELL LUNG CANCER STAGE III
     Dosage: 86.5MG IV
     Route: 042
     Dates: start: 20090401

REACTIONS (6)
  - ASPIRATION [None]
  - HAEMATEMESIS [None]
  - HAEMOGLOBIN DECREASED [None]
  - HAEMORRHAGE [None]
  - HYPOXIA [None]
  - WHITE BLOOD CELL COUNT DECREASED [None]
